FAERS Safety Report 23773384 (Version 3)
Quarter: 2024Q4

REPORT INFORMATION
  Report Type: Report from Study
  Country: JP (occurrence: JP)
  Receive Date: 20240423
  Receipt Date: 20241130
  Transmission Date: 20250115
  Serious: Yes (Death, Other)
  Sender: ALEXION PHARMACEUTICALS
  Company Number: 2024A094225

PATIENT
  Age: 73 Year
  Weight: 49 kg

DRUGS (66)
  1. CILGAVIMAB\TIXAGEVIMAB [Suspect]
     Active Substance: CILGAVIMAB\TIXAGEVIMAB
     Indication: COVID-19 prophylaxis
     Dosage: 600 MILLIGRAM
  2. CILGAVIMAB\TIXAGEVIMAB [Suspect]
     Active Substance: CILGAVIMAB\TIXAGEVIMAB
     Dosage: 600 MILLIGRAM
  3. CILGAVIMAB\TIXAGEVIMAB [Suspect]
     Active Substance: CILGAVIMAB\TIXAGEVIMAB
     Dosage: 600 MILLIGRAM
  4. CILGAVIMAB\TIXAGEVIMAB [Suspect]
     Active Substance: CILGAVIMAB\TIXAGEVIMAB
     Dosage: 600 MILLIGRAM
  5. PANTETHINE [Concomitant]
     Active Substance: PANTETHINE
     Indication: Prophylaxis
     Dosage: DOSE UNKNOWN
  6. PANTETHINE [Concomitant]
     Active Substance: PANTETHINE
     Dosage: DOSE UNKNOWN
  7. ESOMEPRAZOLE [Concomitant]
     Active Substance: ESOMEPRAZOLE
     Indication: Prophylaxis
     Dosage: DOSE UNKNOWN
  8. ESOMEPRAZOLE [Concomitant]
     Active Substance: ESOMEPRAZOLE
     Dosage: DOSE UNKNOWN
  9. ESOMEPRAZOLE [Concomitant]
     Active Substance: ESOMEPRAZOLE
     Dosage: DOSE UNKNOWN
  10. ESOMEPRAZOLE [Concomitant]
     Active Substance: ESOMEPRAZOLE
     Dosage: DOSE UNKNOWN
  11. MAGNESIUM OXIDE [Concomitant]
     Active Substance: MAGNESIUM OXIDE
     Indication: Prophylaxis
     Dosage: DOSE UNKNOWN
  12. MAGNESIUM OXIDE [Concomitant]
     Active Substance: MAGNESIUM OXIDE
     Dosage: DOSE UNKNOWN
  13. LOXOPROFEN SODIUM DIHYDRATE [Concomitant]
     Active Substance: LOXOPROFEN SODIUM DIHYDRATE
     Indication: Prophylaxis
     Dosage: DOSE UNKNOWN
  14. LOXOPROFEN SODIUM DIHYDRATE [Concomitant]
     Active Substance: LOXOPROFEN SODIUM DIHYDRATE
     Dosage: DOSE UNKNOWN
  15. LUBIPROSTONE [Concomitant]
     Active Substance: LUBIPROSTONE
     Indication: Constipation
     Dosage: DOSE UNKNOWN
  16. LUBIPROSTONE [Concomitant]
     Active Substance: LUBIPROSTONE
     Dosage: DOSE UNKNOWN
  17. OXINORM [Concomitant]
     Indication: Cancer pain
     Dosage: DOSE UNKNOWN
  18. OXINORM [Concomitant]
     Dosage: DOSE UNKNOWN
  19. OXINORM [Concomitant]
     Dosage: DOSE UNKNOWN
  20. OXINORM [Concomitant]
     Dosage: DOSE UNKNOWN
  21. OXINORM [Concomitant]
     Dosage: DOSE UNKNOWN
  22. OXINORM [Concomitant]
     Dosage: DOSE UNKNOWN
  23. PREDNISOLONE [Concomitant]
     Active Substance: PREDNISOLONE
     Indication: Diffuse large B-cell lymphoma
     Dosage: DOSE UNKNOWN
  24. PREDNISOLONE [Concomitant]
     Active Substance: PREDNISOLONE
     Dosage: DOSE UNKNOWN
  25. RITUXAN [Concomitant]
     Active Substance: RITUXIMAB
     Indication: Diffuse large B-cell lymphoma
     Dosage: DOSE UNKNOWN
     Route: 065
  26. RITUXAN [Concomitant]
     Active Substance: RITUXIMAB
     Dosage: DOSE UNKNOWN
  27. RITUXAN [Concomitant]
     Active Substance: RITUXIMAB
     Dosage: DOSE UNKNOWN
     Route: 065
  28. RITUXAN [Concomitant]
     Active Substance: RITUXIMAB
     Dosage: DOSE UNKNOWN
  29. GRANISETRON HYDROCHLORIDE [Concomitant]
     Active Substance: GRANISETRON HYDROCHLORIDE
     Indication: Diffuse large B-cell lymphoma
     Dosage: DOSE UNKNOWN
     Route: 065
  30. GRANISETRON HYDROCHLORIDE [Concomitant]
     Active Substance: GRANISETRON HYDROCHLORIDE
     Dosage: DOSE UNKNOWN
  31. GRANISETRON HYDROCHLORIDE [Concomitant]
     Active Substance: GRANISETRON HYDROCHLORIDE
     Dosage: DOSE UNKNOWN
     Route: 065
  32. GRANISETRON HYDROCHLORIDE [Concomitant]
     Active Substance: GRANISETRON HYDROCHLORIDE
     Dosage: DOSE UNKNOWN
  33. VINCRISTINE SULFATE [Concomitant]
     Active Substance: VINCRISTINE SULFATE
     Indication: Diffuse large B-cell lymphoma
     Dosage: DOSE UNKNOWN
  34. VINCRISTINE SULFATE [Concomitant]
     Active Substance: VINCRISTINE SULFATE
     Dosage: DOSE UNKNOWN
     Route: 065
  35. DOXORUBICIN HYDROCHLORIDE [Concomitant]
     Active Substance: DOXORUBICIN HYDROCHLORIDE
     Indication: Diffuse large B-cell lymphoma
     Dosage: DOSE UNKNOWN
  36. DOXORUBICIN HYDROCHLORIDE [Concomitant]
     Active Substance: DOXORUBICIN HYDROCHLORIDE
     Dosage: DOSE UNKNOWN
     Route: 065
  37. CYCLOPHOSPHAMIDE [Concomitant]
     Active Substance: CYCLOPHOSPHAMIDE
     Indication: Diffuse large B-cell lymphoma
     Dosage: DOSE UNKNOWN
     Route: 065
  38. CYCLOPHOSPHAMIDE [Concomitant]
     Active Substance: CYCLOPHOSPHAMIDE
     Dosage: DOSE UNKNOWN
  39. CYCLOPHOSPHAMIDE [Concomitant]
     Active Substance: CYCLOPHOSPHAMIDE
     Dosage: DOSE UNKNOWN
     Route: 065
  40. CYCLOPHOSPHAMIDE [Concomitant]
     Active Substance: CYCLOPHOSPHAMIDE
     Dosage: DOSE UNKNOWN
  41. NEXIUM [Concomitant]
     Active Substance: ESOMEPRAZOLE MAGNESIUM
     Indication: Prophylaxis
     Dosage: DOSE UNKNOWN
  42. NEXIUM [Concomitant]
     Active Substance: ESOMEPRAZOLE MAGNESIUM
     Dosage: DOSE UNKNOWN
  43. PANTETHINE [Concomitant]
     Active Substance: PANTETHINE
     Indication: Prophylaxis
     Dosage: DOSE UNKNOWN
  44. PANTETHINE [Concomitant]
     Active Substance: PANTETHINE
     Dosage: DOSE UNKNOWN
  45. PANTETHINE [Concomitant]
     Active Substance: PANTETHINE
     Dosage: DOSE UNKNOWN
  46. PANTETHINE [Concomitant]
     Active Substance: PANTETHINE
     Dosage: DOSE UNKNOWN
  47. MAGNESIUM OXIDE [Concomitant]
     Active Substance: MAGNESIUM OXIDE
     Indication: Prophylaxis
     Dosage: DOSE UNKNOWN
  48. MAGNESIUM OXIDE [Concomitant]
     Active Substance: MAGNESIUM OXIDE
     Dosage: DOSE UNKNOWN
  49. MAGNESIUM OXIDE [Concomitant]
     Active Substance: MAGNESIUM OXIDE
     Dosage: DOSE UNKNOWN
  50. MAGNESIUM OXIDE [Concomitant]
     Active Substance: MAGNESIUM OXIDE
     Dosage: DOSE UNKNOWN
  51. LOXOPROFEN SODIUM [Concomitant]
     Active Substance: LOXOPROFEN SODIUM
     Indication: Prophylaxis
     Dosage: DOSE UNKNOWN
  52. LOXOPROFEN SODIUM [Concomitant]
     Active Substance: LOXOPROFEN SODIUM
     Dosage: DOSE UNKNOWN
  53. AMITIZA [Concomitant]
     Active Substance: LUBIPROSTONE
     Indication: Constipation
     Dosage: DOSE UNKNOWN
  54. AMITIZA [Concomitant]
     Active Substance: LUBIPROSTONE
     Dosage: DOSE UNKNOWN
  55. AMITIZA [Concomitant]
     Active Substance: LUBIPROSTONE
     Dosage: DOSE UNKNOWN
  56. AMITIZA [Concomitant]
     Active Substance: LUBIPROSTONE
     Dosage: DOSE UNKNOWN
  57. PREDONINE [Concomitant]
     Active Substance: PREDNISOLONE
     Indication: Diffuse large B-cell lymphoma
     Dosage: DOSE UNKNOWN
  58. PREDONINE [Concomitant]
     Active Substance: PREDNISOLONE
     Dosage: DOSE UNKNOWN
  59. ONCOVIN [Concomitant]
     Active Substance: VINCRISTINE SULFATE
     Indication: Diffuse large B-cell lymphoma
     Dosage: DOSE UNKNOWN
     Route: 065
  60. ONCOVIN [Concomitant]
     Active Substance: VINCRISTINE SULFATE
     Dosage: DOSE UNKNOWN
  61. ONCOVIN [Concomitant]
     Active Substance: VINCRISTINE SULFATE
     Dosage: DOSE UNKNOWN
     Route: 065
  62. ONCOVIN [Concomitant]
     Active Substance: VINCRISTINE SULFATE
     Dosage: DOSE UNKNOWN
  63. ADRIACIN [Concomitant]
     Active Substance: DOXORUBICIN HYDROCHLORIDE
     Indication: Diffuse large B-cell lymphoma
     Dosage: DOSE UNKNOWN
     Route: 065
  64. ADRIACIN [Concomitant]
     Active Substance: DOXORUBICIN HYDROCHLORIDE
     Dosage: DOSE UNKNOWN
  65. ADRIACIN [Concomitant]
     Active Substance: DOXORUBICIN HYDROCHLORIDE
     Dosage: DOSE UNKNOWN
     Route: 065
  66. ADRIACIN [Concomitant]
     Active Substance: DOXORUBICIN HYDROCHLORIDE
     Dosage: DOSE UNKNOWN

REACTIONS (1)
  - Diffuse large B-cell lymphoma [Fatal]
